FAERS Safety Report 5868493-0 (Version None)
Quarter: 2008Q3

REPORT INFORMATION
  Report Type: 
  Country: None (occurrence: None)
  Receive Date: 20080903
  Receipt Date: 20080826
  Transmission Date: 20090109
  Serious: Yes (Life-Threatening, Hospitalization, Other)
  Sender: FDA-Public Use
  Company Number: DE-PURDUE-DEU_2008_0004517

PATIENT
  Age: 70 Year
  Sex: Male

DRUGS (4)
  1. PALLADON RETARD 24 MG [Suspect]
     Indication: SCIATICA
     Dosage: 48 MG, BID
     Route: 048
  2. LYRICA [Concomitant]
  3. NOVALGIN [Concomitant]
  4. PALLADON 2,6MG HARTKAPSELN [Suspect]
     Indication: SCIATICA
     Route: 048

REACTIONS (4)
  - DISTURBANCE IN ATTENTION [None]
  - FEBRILE INFECTION [None]
  - OVERDOSE [None]
  - RESPIRATORY FAILURE [None]
